FAERS Safety Report 12880549 (Version 1)
Quarter: 2016Q4

REPORT INFORMATION
  Report Type: Spontaneous
  Country: FR (occurrence: FR)
  Receive Date: 20161025
  Receipt Date: 20161025
  Transmission Date: 20170207
  Serious: Yes (Hospitalization)
  Sender: FDA-Public Use
  Company Number: FR-PFIZER INC-2016488608

PATIENT
  Age: 17 Year
  Sex: Female

DRUGS (2)
  1. TRINORDIOL [Suspect]
     Active Substance: ETHINYL ESTRADIOL\LEVONORGESTREL
     Indication: ORAL CONTRACEPTION
     Dosage: 1 DF, 1X/DAY, 30-40-30UG/ 50-75-125UG, 21 DAYS OVER 28
     Route: 048
     Dates: start: 20160706, end: 20160919
  2. LEELOO [Suspect]
     Active Substance: ETHINYL ESTRADIOL\LEVONORGESTREL
     Indication: ORAL CONTRACEPTION
     Dosage: 1 DF, 1X/DAY, 01MG/ 0.02MG, 22 DAYS OVER 28
     Route: 048
     Dates: start: 201604, end: 201606

REACTIONS (2)
  - Blood creatine phosphokinase increased [Recovered/Resolved]
  - Oedema peripheral [Recovered/Resolved]

NARRATIVE: CASE EVENT DATE: 20160920
